FAERS Safety Report 20718683 (Version 1)
Quarter: 2022Q2

REPORT INFORMATION
  Report Type: Spontaneous
  Country: US (occurrence: US)
  Receive Date: 20220418
  Receipt Date: 20220418
  Transmission Date: 20220720
  Serious: No
  Sender: FDA-Public Use
  Company Number: US-GLAXOSMITHKLINE-US2022AMR020603

PATIENT

DRUGS (1)
  1. NUCALA [Suspect]
     Active Substance: MEPOLIZUMAB
     Indication: Product used for unknown indication
     Dosage: 100 MG 100MG/ML 1X1ML_US-GSK

REACTIONS (3)
  - Injection site haemorrhage [Unknown]
  - Exposure via skin contact [Unknown]
  - Product complaint [Unknown]

NARRATIVE: CASE EVENT DATE: 20220104
